FAERS Safety Report 7593537-8 (Version None)
Quarter: 2011Q3

REPORT INFORMATION
  Report Type: 
  Country: None (occurrence: None)
  Receive Date: 20110706
  Receipt Date: 20110624
  Transmission Date: 20111222
  Serious: Yes (Other)
  Sender: FDA-Public Use
  Company Number: US-BAYER-2011-004979

PATIENT
  Sex: Female
  Weight: 72.562 kg

DRUGS (14)
  1. DROSPIRENONE AND ETHINYL ESTRADIOL [Suspect]
  2. CLINDAMYCIN [Concomitant]
     Dosage: UNK
     Dates: start: 20010801
  3. YASMIN [Suspect]
     Dosage: UNK
     Dates: start: 20010821, end: 20020701
  4. SULFACETAMIDE SODIUM [Concomitant]
     Dosage: UNK
     Dates: start: 20010801
  5. PROCHLORPERAZINE TAB [Concomitant]
     Dosage: UNK
     Dates: start: 20010801
  6. YAZ [Suspect]
     Dosage: UNK
     Dates: start: 20010821, end: 20020701
  7. PREVACID [Concomitant]
     Dosage: UNK
     Dates: start: 20011208
  8. CHLORHEXIDINE GLUCONATE [Concomitant]
     Dosage: UNK
     Dates: start: 20010801
  9. PROPOXYPHENE HYDROCHLORIDE [Concomitant]
     Dosage: UNK
     Dates: start: 20010801
  10. PENICILLIN [Concomitant]
     Dosage: UNK
     Dates: start: 20010801
  11. AMOXICILLIN [Concomitant]
     Dosage: UNK
     Dates: start: 20010801
  12. ZITHROMAX [Concomitant]
     Dosage: UNK
     Dates: start: 20010801
  13. ERYTHROMYCIN [Concomitant]
     Dosage: UNK
     Dates: start: 20010801
  14. TOBRADEX [Concomitant]
     Dosage: UNK
     Dates: start: 20010801

REACTIONS (4)
  - INJURY [None]
  - PAIN [None]
  - GALLBLADDER DISORDER [None]
  - EMOTIONAL DISTRESS [None]
